FAERS Safety Report 5655576-3 (Version None)
Quarter: 2008Q1

REPORT INFORMATION
  Report Type: 
  Country: None (occurrence: None)
  Receive Date: 20080307
  Receipt Date: 20080228
  Transmission Date: 20080703
  Serious: Yes (Other)
  Sender: FDA-Public Use
  Company Number: US-PURDUE-DEU_2008_0004028

PATIENT
  Age: 32 Year
  Sex: Female

DRUGS (7)
  1. HYDROMORPHONE HCL [Suspect]
     Indication: CANCER PAIN
     Dosage: UNK, SEE TEXT
     Route: 037
  2. HYDROMORPHONE HCL [Suspect]
     Dosage: 35 MG, SEE TEXT
     Route: 042
  3. FENTANYL [Suspect]
  4. BUPIVACAINE [Suspect]
  5. CLONIDINE [Suspect]
  6. METHADONE HCL [Suspect]
  7. KETAMINE HCL [Suspect]

REACTIONS (11)
  - ARTHRALGIA [None]
  - COAGULOPATHY [None]
  - CONFUSIONAL STATE [None]
  - CONSTIPATION [None]
  - DISEASE PROGRESSION [None]
  - DISORIENTATION [None]
  - GROIN PAIN [None]
  - INSOMNIA [None]
  - PAIN [None]
  - PELVIC PAIN [None]
  - URETERIC OBSTRUCTION [None]
